FAERS Safety Report 10281154 (Version 2)
Quarter: 2014Q3

REPORT INFORMATION
  Report Type: Report from Study
  Country: CA (occurrence: CA)
  Receive Date: 20140707
  Receipt Date: 20140707
  Transmission Date: 20150326
  Serious: Yes (Hospitalization, Other)
  Sender: FDA-Public Use
  Company Number: CA-BRISTOL-MYERS SQUIBB COMPANY-15552714

PATIENT
  Age: 83 Year
  Sex: Female

DRUGS (6)
  1. ORENCIA [Suspect]
     Active Substance: ABATACEPT
     Indication: RHEUMATOID ARTHRITIS
     Dosage: LSTDS:11FE11,13MAR11.7APR11,22SEP11,15JA12,09AP12,06MAY12,INF:48,LOT:1L66305EXDT:SE14,3J75953:JUL16
     Route: 042
     Dates: start: 20061109
  2. ZOPLICONE [Concomitant]
     Active Substance: ZOPICLONE
     Dosage: AT NIGHT.(HS)
  3. FOLIC ACID. [Concomitant]
     Active Substance: FOLIC ACID
  4. METHOTREXATE (METHOTREXATE SODIUM) [Concomitant]
     Active Substance: METHOTREXATE SODIUM
     Dosage: 1 DF:4 TABS
  5. OMEPRAZOLE. [Concomitant]
     Active Substance: OMEPRAZOLE
  6. PREDNISONE. [Concomitant]
     Active Substance: PREDNISONE

REACTIONS (13)
  - Joint range of motion decreased [Unknown]
  - Wrist fracture [Unknown]
  - Rheumatoid nodule [Unknown]
  - Foot fracture [Unknown]
  - Hypertension [Unknown]
  - Peripheral swelling [Not Recovered/Not Resolved]
  - Contusion [Unknown]
  - Confusional state [Unknown]
  - Fall [Unknown]
  - Back pain [Not Recovered/Not Resolved]
  - Pain in extremity [Unknown]
  - Dehydration [Unknown]
  - Memory impairment [Unknown]

NARRATIVE: CASE EVENT DATE: 201012
